APPROVED DRUG PRODUCT: KETOTIFEN FUMARATE
Active Ingredient: KETOTIFEN FUMARATE
Strength: EQ 0.025% BASE
Dosage Form/Route: SOLUTION/DROPS;OPHTHALMIC
Application: A204059 | Product #001
Applicant: UNICHEM LABORATORIES LTD
Approved: Jun 1, 2020 | RLD: No | RS: No | Type: OTC